FAERS Safety Report 25807090 (Version 2)
Quarter: 2025Q4

REPORT INFORMATION
  Report Type: Report from Study
  Country: EU (occurrence: EU)
  Receive Date: 20250916
  Receipt Date: 20251013
  Transmission Date: 20260118
  Serious: Yes (Other)
  Sender: NOVARTIS
  Company Number: EU-002147023-NVSC2025IT141810

PATIENT
  Sex: Female

DRUGS (3)
  1. KESIMPTA [Suspect]
     Active Substance: OFATUMUMAB
     Indication: Multiple sclerosis
     Dosage: 20 MG
     Route: 058
     Dates: start: 20250129
  2. VENLAFAXINE HYDROCHLORIDE [Concomitant]
     Active Substance: VENLAFAXINE HYDROCHLORIDE
     Indication: Depression
     Dosage: 75 MG (BEFORE SCREENING)
     Route: 048
     Dates: start: 202401
  3. BROMAZEPAM [Concomitant]
     Active Substance: BROMAZEPAM
     Indication: Product used for unknown indication
     Dosage: 1.5 MG (BEFORE SCREENING)
     Route: 048
     Dates: start: 202401

REACTIONS (3)
  - Pneumonia [Recovered/Resolved]
  - Pyrexia [Unknown]
  - Haemoptysis [Unknown]

NARRATIVE: CASE EVENT DATE: 20250601
